FAERS Safety Report 9068487 (Version 1)
Quarter: 2013Q1

REPORT INFORMATION
  Report Type: Report from Study
  Country: US (occurrence: US)
  Receive Date: 20130206
  Receipt Date: 20130206
  Transmission Date: 20140127
  Serious: Yes (Hospitalization)
  Sender: FDA-Public Use
  Company Number: US-ACTELION-A-US2013-78120

PATIENT
  Age: 51 Year
  Sex: Female

DRUGS (1)
  1. VELETRI [Suspect]
     Indication: PULMONARY ARTERIAL HYPERTENSION
     Dosage: 10 NG/KG, PER MIN
     Route: 042
     Dates: start: 20121208

REACTIONS (6)
  - Hypokalaemia [Unknown]
  - Limb discomfort [Unknown]
  - Gait disturbance [Unknown]
  - Erythema [Unknown]
  - Swelling [Unknown]
  - Skin discomfort [Unknown]
